FAERS Safety Report 19934955 (Version 1)
Quarter: 2021Q4

REPORT INFORMATION
  Report Type: Spontaneous
  Country: HR (occurrence: HR)
  Receive Date: 20211008
  Receipt Date: 20211008
  Transmission Date: 20220303
  Serious: Yes (Other)
  Sender: FDA-Public Use
  Company Number: HR-009507513-2110HRV001895

PATIENT
  Age: 58 Year
  Sex: Female
  Weight: 41.5 kg

DRUGS (4)
  1. KEYTRUDA [Suspect]
     Active Substance: PEMBROLIZUMAB
     Dosage: FIRST CYCLE
     Dates: start: 2016
  2. KEYTRUDA [Suspect]
     Active Substance: PEMBROLIZUMAB
     Dosage: 23/27 APPROVED CYCLES (AS REPORTED)
     Dates: start: 201702
  3. KEYTRUDA [Suspect]
     Active Substance: PEMBROLIZUMAB
     Dosage: 32/32 APPROVED CYCLES
     Dates: start: 201809
  4. KEYTRUDA [Suspect]
     Active Substance: PEMBROLIZUMAB
     Dosage: 37 APPROVED CYCLES
     Dates: start: 20190108

REACTIONS (8)
  - Peritumoural oedema [Unknown]
  - Tumour necrosis [Unknown]
  - Malignant neoplasm progression [Unknown]
  - Central nervous system lesion [Unknown]
  - Dysphagia [Unknown]
  - Dyspepsia [Unknown]
  - Weight decreased [Unknown]
  - Diarrhoea [Unknown]

NARRATIVE: CASE EVENT DATE: 20180924
